FAERS Safety Report 11528494 (Version 1)
Quarter: 2015Q3

REPORT INFORMATION
  Report Type: Spontaneous
  Country: US (occurrence: None)
  Receive Date: 20150917
  Receipt Date: 20150917
  Transmission Date: 20151125
  Serious: Yes (Hospitalization, Other)
  Sender: FDA-Public Use
  Company Number: US-ZYDUS-009002

PATIENT
  Age: 31 Year
  Sex: Female

DRUGS (1)
  1. LOSARTAN (LOSARTAN) [Suspect]
     Active Substance: LOSARTAN
     Indication: PRODUCT USED FOR UNKNOWN INDICATION

REACTIONS (5)
  - Abdominal pain [None]
  - Nausea [None]
  - Intestinal angioedema [None]
  - Vomiting [None]
  - Diarrhoea [None]
